FAERS Safety Report 6600456-X (Version None)
Quarter: 2010Q1

REPORT INFORMATION
  Report Type: 
  Country: None (occurrence: None)
  Receive Date: 20100223
  Receipt Date: 20100223
  Transmission Date: 20100710
  Serious: Yes (Other)
  Sender: FDA-Public Use
  Company Number: None

PATIENT
  Age: 38 Year
  Sex: Female
  Weight: 80.7403 kg

DRUGS (2)
  1. SAVELLA [Suspect]
     Indication: FIBROMYALGIA
     Dosage: 12.5 - 25 MG X2 DAILY PO
     Route: 048
     Dates: start: 20100218, end: 20100221
  2. SAVELLA [Suspect]
     Indication: PAIN
     Dosage: 12.5 - 25 MG X2 DAILY PO
     Route: 048
     Dates: start: 20100218, end: 20100221

REACTIONS (13)
  - ABDOMINAL PAIN UPPER [None]
  - BLOOD PRESSURE INCREASED [None]
  - CHILLS [None]
  - COLD SWEAT [None]
  - DECREASED ACTIVITY [None]
  - DISTURBANCE IN ATTENTION [None]
  - DYSPNOEA [None]
  - FEELING ABNORMAL [None]
  - HYPERHIDROSIS [None]
  - MALAISE [None]
  - MEMORY IMPAIRMENT [None]
  - NAUSEA [None]
  - VISION BLURRED [None]
